FAERS Safety Report 9511461 (Version 1)
Quarter: 2013Q1

REPORT INFORMATION
  Report Type: Spontaneous
  Country: US (occurrence: None)
  Receive Date: 20130305
  Receipt Date: 20130305
  Transmission Date: 20140127
  Serious: Yes (Other)
  Sender: FDA-Public Use
  Company Number: 163-21880-11100241

PATIENT
  Age: 58 Year
  Sex: Female

DRUGS (12)
  1. REVLIMID (LENALIDOMIDE) (25 MILLIGRAM, CAPSULES) [Suspect]
     Indication: PLASMA CELL MYELOMA
     Dosage: 25 MG, 21 IN 21 D, PO
     Route: 048
     Dates: start: 201003
  2. IMODIUM A-D (LOPERAMIDE HYDROCHLORIDE) (UNKNOWN) [Concomitant]
  3. PLAQUENIL (HYDROXYCHLOROQUINE PHOSPHATE) (UNKNOWN) [Concomitant]
  4. POTASSIUM (POTASSIUM) (UNKNOWN) [Concomitant]
  5. DEXAMETHASONE (DEXAMETHASONE) (UNKNOWN) [Concomitant]
  6. EFFEXOR XR (VENLAFAXINE HYDROCHLORIDE) (UNKNOWN) [Concomitant]
  7. DENTANYL (FENTANYL) (UNKNOWN) [Concomitant]
  8. HYDROCODONE/ACETAMINOPHEN (REMEDEINE) (UNKNOWN) [Concomitant]
  9. LAMOTRIGINE (LAMOTRIGINE) (UNKNOWN) [Concomitant]
  10. LISINOPRIL (LISINOPRIL) (UNKNOWN) [Concomitant]
  11. ALKA-SELTZER PLUS COLD + COUGH (ALKA-SELTZER PLUS COLD + COUGH) (UNKNOWN) [Concomitant]
  12. GABAPENTIN (GABAPENTIN) (UNKNOWN) (GABAPENTIN) [Concomitant]

REACTIONS (1)
  - Diarrhoea [None]
